FAERS Safety Report 17434873 (Version 1)
Quarter: 2020Q1

REPORT INFORMATION
  Report Type: Spontaneous
  Country: CO (occurrence: CO)
  Receive Date: 20200219
  Receipt Date: 20200219
  Transmission Date: 20200409
  Serious: Yes (Other)
  Sender: FDA-Public Use
  Company Number: CO-PFIZER INC-2020071259

PATIENT
  Age: 18 Year
  Weight: 70 kg

DRUGS (1)
  1. DETRUSITOL [Suspect]
     Active Substance: TOLTERODINE TARTRATE
     Indication: NEUROGENIC BLADDER
     Dosage: 1 DF, DAILY

REACTIONS (3)
  - Dyschezia [Unknown]
  - Gastrointestinal stoma complication [Unknown]
  - Intestinal mass [Unknown]

NARRATIVE: CASE EVENT DATE: 20200212
